FAERS Safety Report 13226176 (Version 2)
Quarter: 2017Q2

REPORT INFORMATION
  Report Type: Spontaneous
  Country: US (occurrence: US)
  Receive Date: 20170213
  Receipt Date: 20170404
  Transmission Date: 20170830
  Serious: Yes (Other)
  Sender: FDA-Public Use
  Company Number: US-PFIZER INC-2017055217

PATIENT
  Age: 54 Year
  Sex: Female

DRUGS (1)
  1. CABERGOLINE. [Suspect]
     Active Substance: CABERGOLINE
     Dosage: 0.5 DF (1/2 PILL ) 2X/WEEK
     Dates: start: 200709

REACTIONS (5)
  - Vomiting [Unknown]
  - Hydrocephalus [Unknown]
  - Balance disorder [Unknown]
  - Ependymoma [Unknown]
  - Blood growth hormone abnormal [Unknown]

NARRATIVE: CASE EVENT DATE: 2008
